FAERS Safety Report 7960269-3 (Version None)
Quarter: 2011Q4

REPORT INFORMATION
  Report Type: 
  Country: None (occurrence: None)
  Receive Date: 20111206
  Receipt Date: 20111128
  Transmission Date: 20120403
  Serious: Yes (Other)
  Sender: FDA-Public Use
  Company Number: US-ACTELION-A-US2011-57620

PATIENT

DRUGS (12)
  1. PLAVIX [Concomitant]
  2. MOTRIN [Concomitant]
  3. MULTAQ [Concomitant]
  4. HYDROXYCHLOROQUINE [Concomitant]
  5. TRACLEER [Suspect]
     Indication: PULMONARY HYPERTENSION
     Dosage: 125 MG, UNK
     Route: 048
  6. AMBIEN [Concomitant]
  7. MS CONTIN [Concomitant]
  8. GABAPENTIN [Concomitant]
  9. NEXIUM [Concomitant]
  10. DILTIAZEM HCL [Concomitant]
  11. LIPITOR [Concomitant]
  12. PERCOCET [Concomitant]

REACTIONS (3)
  - FATIGUE [None]
  - SKIN ULCER [None]
  - NAUSEA [None]
